FAERS Safety Report 10370161 (Version 1)
Quarter: 2014Q3

REPORT INFORMATION
  Report Type: Spontaneous
  Country: US (occurrence: None)
  Receive Date: 20140806
  Receipt Date: 20140806
  Transmission Date: 20150326
  Serious: Yes (Hospitalization)
  Sender: FDA-Public Use
  Company Number: None

PATIENT
  Age: 80 Year
  Sex: Female
  Weight: 50.45 kg

DRUGS (2)
  1. TAXOL [Suspect]
     Active Substance: PACLITAXEL
  2. CARBOPLATIN. [Suspect]
     Active Substance: CARBOPLATIN

REACTIONS (5)
  - Asthenia [None]
  - Diarrhoea [None]
  - Performance status decreased [None]
  - Haemoglobin decreased [None]
  - Fatigue [None]

NARRATIVE: CASE EVENT DATE: 20140727
